FAERS Safety Report 7020918-3 (Version None)
Quarter: 2010Q3

REPORT INFORMATION
  Report Type: 
  Country: None (occurrence: None)
  Receive Date: 20100929
  Receipt Date: 20100920
  Transmission Date: 20110219
  Serious: Yes (Other)
  Sender: FDA-Public Use
  Company Number: US-PURDUE-USA-2010-0047284

PATIENT
  Sex: Female

DRUGS (1)
  1. OXYCONTIN [Suspect]
     Indication: SPINAL FUSION SURGERY
     Dosage: 80 MG, TID
     Dates: start: 20100913

REACTIONS (5)
  - DRUG INEFFECTIVE [None]
  - HAEMATEMESIS [None]
  - MALAISE [None]
  - RETCHING [None]
  - VOMITING [None]
